FAERS Safety Report 25314702 (Version 1)
Quarter: 2025Q2

REPORT INFORMATION
  Report Type: Spontaneous
  Country: LB (occurrence: LB)
  Receive Date: 20250514
  Receipt Date: 20250514
  Transmission Date: 20250717
  Serious: Yes (Other)
  Sender: AMGEN
  Company Number: LB-AMGEN-LBNSP2025090548

PATIENT

DRUGS (2)
  1. ADALIMUMAB [Suspect]
     Active Substance: ADALIMUMAB
     Indication: Behcet^s syndrome
     Route: 065
  2. APREMILAST [Suspect]
     Active Substance: APREMILAST
     Indication: Behcet^s syndrome
     Route: 065

REACTIONS (7)
  - Behcet^s syndrome [Unknown]
  - Modified Rankin score increased [Unknown]
  - Drug effective for unapproved indication [Unknown]
  - Drug ineffective for unapproved indication [Unknown]
  - C-reactive protein increased [Unknown]
  - Red blood cell sedimentation rate increased [Unknown]
  - Off label use [Unknown]
